FAERS Safety Report 5135582-8 (Version None)
Quarter: 2006Q4

REPORT INFORMATION
  Report Type: 
  Country: None (occurrence: None)
  Receive Date: 20061026
  Receipt Date: 20061017
  Transmission Date: 20070319
  Serious: Yes (Hospitalization)
  Sender: FDA-Public Use
  Company Number: US-AMGEN-US197141

PATIENT
  Age: 53 Year
  Sex: Male

DRUGS (17)
  1. ARANESP [Suspect]
     Indication: RENAL TRANSPLANT
     Route: 058
  2. PREDNISONE TAB [Concomitant]
  3. CELLCEPT [Concomitant]
  4. PROTONIX [Concomitant]
  5. NORVASC [Concomitant]
  6. ALDACTONE [Concomitant]
  7. LOPRESSOR [Concomitant]
  8. IMDUR [Concomitant]
  9. NPH INSULIN [Concomitant]
  10. XOPENEX [Concomitant]
  11. LASIX [Concomitant]
  12. LACTINEX [Concomitant]
  13. K-DUR 10 [Concomitant]
  14. RENAGEL [Concomitant]
  15. CALCITRIOL [Concomitant]
  16. COLACE [Concomitant]
  17. TYLENOL [Concomitant]

REACTIONS (4)
  - CARDIAC FAILURE CONGESTIVE [None]
  - HAEMOGLOBIN DECREASED [None]
  - PNEUMONIA [None]
  - THERAPEUTIC RESPONSE DECREASED [None]
